FAERS Safety Report 9447793 (Version 1)
Quarter: 2013Q3

REPORT INFORMATION
  Report Type: Spontaneous
  Country: US (occurrence: None)
  Receive Date: 20130807
  Receipt Date: 20130807
  Transmission Date: 20140515
  Serious: Yes (Other)
  Sender: FDA-Public Use
  Company Number: None

PATIENT
  Age: 58 Year
  Sex: Male

DRUGS (3)
  1. INCIVEK 375MG VERTEX [Suspect]
     Indication: HEPATITIS C
     Dosage: 750MG TID ORAL
     Route: 048
     Dates: start: 20130719
  2. RIBASPHERE [Concomitant]
  3. PEGASYS [Concomitant]

REACTIONS (3)
  - Rash erythematous [None]
  - Rash pruritic [None]
  - Rash [None]
